FAERS Safety Report 8383834-0 (Version None)
Quarter: 2012Q1

REPORT INFORMATION
  Report Type: 
  Country: None (occurrence: None)
  Receive Date: 20120323
  Receipt Date: 20110307
  Transmission Date: 20120608
  Serious: Yes (Other)
  Sender: FDA-Public Use
  Company Number: 163-21880-11030777

PATIENT
  Sex: Female
  Weight: 81.6475 kg

DRUGS (1)
  1. REVLIMID [Suspect]
     Indication: MULTIPLE MYELOMA
     Dosage: 25 MG, DAILY, PO
     Route: 048
     Dates: start: 20101206

REACTIONS (4)
  - MALAISE [None]
  - COUGH [None]
  - INFLUENZA [None]
  - FATIGUE [None]
